FAERS Safety Report 4406641-X (Version None)
Quarter: 2004Q3

REPORT INFORMATION
  Report Type: 
  Country: None (occurrence: None)
  Receive Date: 20040716
  Receipt Date: 20030901
  Transmission Date: 20050211
  Serious: Yes (Life-Threatening)
  Sender: FDA-Public Use
  Company Number: REFE00204002334

PATIENT
  Age: 60 Year
  Sex: Male
  Weight: 89 kg

DRUGS (5)
  1. CANNADOR (CANNADOR) [Suspect]
     Indication: MULTIPLE SCLEROSIS
     Dosage: 10 MG DAILY PO,   10 MG DAILY PO
     Route: 048
     Dates: start: 20011017, end: 20011026
  2. CANNADOR (CANNADOR) [Suspect]
     Indication: MUSCLE SPASTICITY
     Dosage: 10 MG DAILY PO,   10 MG DAILY PO
     Route: 048
     Dates: start: 20011017, end: 20011026
  3. CANNADOR (CANNADOR) [Suspect]
     Indication: MULTIPLE SCLEROSIS
     Dosage: 10 MG DAILY PO,   10 MG DAILY PO
     Route: 048
     Dates: start: 20011101
  4. CANNADOR (CANNADOR) [Suspect]
     Indication: MUSCLE SPASTICITY
     Dosage: 10 MG DAILY PO,   10 MG DAILY PO
     Route: 048
     Dates: start: 20011101
  5. BACLOFEN [Suspect]
     Indication: MUSCLE SPASTICITY
     Dosage: 30 MG DAILY PO
     Route: 048
     Dates: start: 19930401

REACTIONS (4)
  - BLOOD PRESSURE DECREASED [None]
  - CIRCULATORY COLLAPSE [None]
  - PULSE ABSENT [None]
  - SINUS BRADYCARDIA [None]
